FAERS Safety Report 7952406-1 (Version None)
Quarter: 2011Q4

REPORT INFORMATION
  Report Type: 
  Country: None (occurrence: None)
  Receive Date: 20111201
  Receipt Date: 20111122
  Transmission Date: 20120403
  Serious: Yes (Life-Threatening, Hospitalization, Disabling, Other)
  Sender: FDA-Public Use
  Company Number: CR-GLAXOSMITHKLINE-A0906796A

PATIENT
  Age: 50 Year
  Sex: Female

DRUGS (1)
  1. PAXIL CR [Suspect]
     Indication: MAJOR DEPRESSION
     Dosage: 25MG PER DAY
     Route: 065
     Dates: start: 20101001, end: 20110101

REACTIONS (3)
  - BONE MARROW FAILURE [None]
  - IDIOPATHIC THROMBOCYTOPENIC PURPURA [None]
  - COMPUTERISED TOMOGRAM ABNORMAL [None]
